FAERS Safety Report 6611946-8 (Version None)
Quarter: 2010Q1

REPORT INFORMATION
  Report Type: 
  Country: None (occurrence: None)
  Receive Date: 20100303
  Receipt Date: 20100223
  Transmission Date: 20100710
  Serious: Yes (Hospitalization, Other)
  Sender: FDA-Public Use
  Company Number: JP-ABBOTT-10P-087-0625974-00

PATIENT
  Age: 44 Year
  Sex: Male

DRUGS (5)
  1. CLARITH [Suspect]
     Indication: PYREXIA
     Route: 048
     Dates: start: 20050131, end: 20050202
  2. SOLU-MEDROL [Concomitant]
     Indication: ASTHMA
     Dates: start: 20041101
  3. PREDONINE [Concomitant]
     Indication: ASTHMA
     Route: 048
     Dates: start: 20041101
  4. IBRUPROFEN [Concomitant]
     Indication: PYREXIA
     Dates: start: 20050131, end: 20050205
  5. ANTOBRON [Concomitant]
     Indication: PYREXIA
     Route: 048
     Dates: start: 20050131, end: 20050202

REACTIONS (2)
  - HEPATITIS ACUTE [None]
  - LIVER DISORDER [None]
